FAERS Safety Report 11729255 (Version 3)
Quarter: 2017Q1

REPORT INFORMATION
  Report Type: Spontaneous
  Country: US (occurrence: US)
  Receive Date: 20151112
  Receipt Date: 20170201
  Transmission Date: 20170428
  Serious: Yes (Hospitalization, Other)
  Sender: FDA-Public Use
  Company Number: US-LUNDBECK-DKLU2006333

PATIENT
  Age: 14 Year
  Sex: Male
  Weight: 42 kg

DRUGS (7)
  1. ONFI [Suspect]
     Active Substance: CLOBAZAM
     Indication: GENERALISED TONIC-CLONIC SEIZURE
     Dosage: TITRATION
     Route: 048
     Dates: start: 20150921
  2. ONFI [Suspect]
     Active Substance: CLOBAZAM
     Route: 048
  3. ONFI [Suspect]
     Active Substance: CLOBAZAM
     Route: 048
  4. DEPAKOTE [Suspect]
     Active Substance: DIVALPROEX SODIUM
     Indication: PRODUCT USED FOR UNKNOWN INDICATION
     Route: 065
     Dates: start: 201509
  5. VIMPAT [Concomitant]
     Active Substance: LACOSAMIDE
     Indication: PRODUCT USED FOR UNKNOWN INDICATION
     Route: 065
  6. ONFI [Suspect]
     Active Substance: CLOBAZAM
     Indication: EPILEPSY
     Dosage: SLOWED TITRATION
     Route: 048
     Dates: start: 201510
  7. KEPPRA [Concomitant]
     Active Substance: LEVETIRACETAM
     Indication: PRODUCT USED FOR UNKNOWN INDICATION
     Route: 065
     Dates: start: 201508

REACTIONS (4)
  - Generalised tonic-clonic seizure [Recovered/Resolved]
  - Seizure [Unknown]
  - Partial seizures [Recovered/Resolved]
  - Somnolence [Not Recovered/Not Resolved]

NARRATIVE: CASE EVENT DATE: 201510
